FAERS Safety Report 8819772 (Version 1)
Quarter: 2012Q4

REPORT INFORMATION
  Report Type: 
  Country: US (occurrence: US)
  Receive Date: 20121001
  Receipt Date: 20121001
  Transmission Date: 20130627
  Serious: Yes (Death)
  Sender: FDA-Public Use
  Company Number: US-ROCHE-1130115

PATIENT
  Sex: Male

DRUGS (2)
  1. HERCEPTIN [Suspect]
     Indication: PROSTATE CANCER
     Dosage: Loading Dose
     Route: 065
     Dates: start: 19990427
  2. HERCEPTIN [Suspect]
     Dosage: Maintenance Dose
     Route: 065

REACTIONS (3)
  - Death [Fatal]
  - Tremor [Unknown]
  - Chills [Unknown]
